FAERS Safety Report 6149783-3 (Version None)
Quarter: 2009Q2

REPORT INFORMATION
  Report Type: 
  Country: None (occurrence: None)
  Receive Date: 20090407
  Receipt Date: 20090407
  Transmission Date: 20091009
  Serious: Yes (Other)
  Sender: FDA-Public Use
  Company Number: None

PATIENT
  Age: 81 Year
  Sex: Male
  Weight: 77.1115 kg

DRUGS (1)
  1. DIGOXIN [Suspect]
     Indication: HEART RATE IRREGULAR
     Dosage: 1 TAB. EVERY 2 DAYS PO
     Route: 048
     Dates: start: 19940104, end: 20090406

REACTIONS (4)
  - ABDOMINAL DISCOMFORT [None]
  - DIZZINESS POSTURAL [None]
  - FATIGUE [None]
  - FEELING ABNORMAL [None]
